FAERS Safety Report 15669790 (Version 3)
Quarter: 2019Q1

REPORT INFORMATION
  Report Type: Report from Study
  Country: US (occurrence: US)
  Receive Date: 20181129
  Receipt Date: 20190307
  Transmission Date: 20190417
  Serious: Yes (Other)
  Sender: FDA-Public Use
  Company Number: US-PFIZER INC-2018352735

PATIENT
  Age: 49 Year
  Sex: Female

DRUGS (2)
  1. IBRANCE [Suspect]
     Active Substance: PALBOCICLIB
     Indication: BREAST CANCER FEMALE
     Dosage: 125 MG, CYCLIC (DAILY, 21 DAYS ON THERAPY, 7 DAYS OFF COMPRISING A 28 DAY CYCLE)
     Route: 048
     Dates: start: 20180824
  2. FEMARA [Concomitant]
     Active Substance: LETROZOLE
     Dosage: UNK

REACTIONS (11)
  - Fatigue [Not Recovered/Not Resolved]
  - Alopecia [Recovering/Resolving]
  - Bone marrow failure [Unknown]
  - Headache [Unknown]
  - Product dose omission [Unknown]
  - Dyspnoea [Unknown]
  - Hot flush [Recovering/Resolving]
  - Dry skin [Unknown]
  - Back pain [Unknown]
  - Mucosal inflammation [Unknown]
  - Dry mouth [Unknown]

NARRATIVE: CASE EVENT DATE: 2018
